FAERS Safety Report 4725542-0 (Version None)
Quarter: 2005Q3

REPORT INFORMATION
  Report Type: 
  Country: None (occurrence: None)
  Receive Date: 20050722
  Receipt Date: 20050722
  Transmission Date: 20060218
  Serious: Yes (Other)
  Sender: FDA-Public Use
  Company Number: None

PATIENT
  Sex: Female
  Weight: 82 kg

DRUGS (1)
  1. TEMOZOLOMIDE [Suspect]
     Indication: ACUTE LYMPHOCYTIC LEUKAEMIA
     Dosage: SEE IMAGE
     Dates: start: 20040922, end: 20040926

REACTIONS (14)
  - ABDOMINAL PAIN [None]
  - ABDOMINAL TENDERNESS [None]
  - ABSCESS [None]
  - CANDIDIASIS [None]
  - CATHETER RELATED INFECTION [None]
  - EPISTAXIS [None]
  - FLANK PAIN [None]
  - ORAL CANDIDIASIS [None]
  - PAIN IN EXTREMITY [None]
  - PANCREATITIS [None]
  - PYREXIA [None]
  - RENAL ABSCESS [None]
  - STAPHYLOCOCCAL INFECTION [None]
  - TACHYCARDIA [None]
